FAERS Safety Report 8375707-4 (Version None)
Quarter: 2012Q2

REPORT INFORMATION
  Report Type: 
  Country: None (occurrence: None)
  Receive Date: 20120522
  Receipt Date: 20120514
  Transmission Date: 20120825
  Serious: No
  Sender: FDA-Public Use
  Company Number: US-PFIZER INC-2012117956

PATIENT
  Age: 26 Month
  Sex: Male
  Weight: 16.327 kg

DRUGS (1)
  1. CHILDREN'S ADVIL [Suspect]
     Dosage: UNK

REACTIONS (3)
  - ASTHENIA [None]
  - PSYCHOMOTOR HYPERACTIVITY [None]
  - ACCIDENTAL DRUG INTAKE BY CHILD [None]
